FAERS Safety Report 7421022-2 (Version None)
Quarter: 2011Q2

REPORT INFORMATION
  Report Type: 
  Country: None (occurrence: None)
  Receive Date: 20110418
  Receipt Date: 20110412
  Transmission Date: 20111010
  Serious: Yes (Life-Threatening, Hospitalization, Disabling, Other)
  Sender: FDA-Public Use
  Company Number: GB-ASTRAZENECA-2011SE20934

PATIENT
  Sex: Female
  Weight: 60 kg

DRUGS (7)
  1. OMEPRAZOLE [Concomitant]
  2. ROSUVASTATIN [Suspect]
     Indication: HYPERCHOLESTEROLAEMIA
     Route: 048
     Dates: end: 20110214
  3. CYCLIZINE [Concomitant]
  4. FUCIDINE CAP [Suspect]
     Indication: OSTEOMYELITIS
     Route: 048
     Dates: start: 20110131, end: 20110211
  5. ZOLPIDEM [Concomitant]
  6. TEICOPLANIN [Concomitant]
  7. TETRALYSAL [Concomitant]

REACTIONS (2)
  - POLYMYOSITIS [None]
  - BLOOD CREATINE PHOSPHOKINASE INCREASED [None]
